FAERS Safety Report 8302667-4 (Version None)
Quarter: 2012Q2

REPORT INFORMATION
  Report Type: 
  Country: None (occurrence: None)
  Receive Date: 20120420
  Receipt Date: 20120410
  Transmission Date: 20120825
  Serious: Yes (Life-Threatening, Hospitalization)
  Sender: FDA-Public Use
  Company Number: SE-CELGENEUS-150-VELCA-12033273

PATIENT
  Sex: Male
  Weight: 67 kg

DRUGS (15)
  1. BISOPROLOL FUMARATE [Concomitant]
     Route: 065
     Dates: start: 20120326, end: 20120327
  2. FOLIC ACID [Concomitant]
     Route: 065
     Dates: start: 20120322, end: 20120327
  3. DIGOXIN [Concomitant]
     Route: 065
     Dates: start: 20120322, end: 20120323
  4. NOVOKEPTOL [Concomitant]
     Route: 065
     Dates: start: 20120322, end: 20120322
  5. OXAZEPAM [Concomitant]
     Route: 055
     Dates: start: 20120322, end: 20120322
  6. BETAMETHASONE [Suspect]
     Indication: MULTIPLE MYELOMA
     Route: 048
     Dates: start: 20111215, end: 20120106
  7. BETAMETHASONE [Suspect]
     Route: 048
     Dates: start: 20120202, end: 20120224
  8. POLYETHYLENE GLYCOL [Concomitant]
     Route: 065
     Dates: start: 20120322, end: 20120327
  9. LAXOBERAL [Concomitant]
     Route: 065
     Dates: start: 20120322, end: 20120322
  10. VELCADE [Suspect]
     Indication: MULTIPLE MYELOMA
     Route: 058
     Dates: start: 20111215, end: 20120105
  11. VELCADE [Suspect]
     Route: 058
     Dates: start: 20120202, end: 20120223
  12. BETAPROL [Concomitant]
     Route: 065
     Dates: start: 20120322, end: 20120327
  13. ROBINUL [Concomitant]
     Route: 065
     Dates: start: 20120323, end: 20120323
  14. REVLIMID [Suspect]
     Indication: MULTIPLE MYELOMA
     Route: 048
     Dates: start: 20120307
  15. IMOVANE [Concomitant]
     Route: 065
     Dates: start: 20120322, end: 20120324

REACTIONS (2)
  - MYOCARDIAL INFARCTION [None]
  - PNEUMONIA [None]
